FAERS Safety Report 16094384 (Version 2)
Quarter: 2019Q2

REPORT INFORMATION
  Report Type: Spontaneous
  Country: US (occurrence: US)
  Receive Date: 20190320
  Receipt Date: 20190416
  Transmission Date: 20190711
  Serious: No
  Sender: FDA-Public Use
  Company Number: US-PFIZER INC-2019109248

PATIENT
  Age: 52 Year
  Sex: Female
  Weight: 83.91 kg

DRUGS (14)
  1. LYRICA [Suspect]
     Active Substance: PREGABALIN
     Indication: DIALYSIS
     Dosage: UNK
     Route: 048
     Dates: start: 201807
  2. TIZANIDINE. [Concomitant]
     Active Substance: TIZANIDINE
     Indication: BACK DISORDER
  3. SOMA [Concomitant]
     Active Substance: CARISOPRODOL
     Indication: SCOLIOSIS
     Dosage: 350 MG, 2X/DAY
  4. SOMA [Concomitant]
     Active Substance: CARISOPRODOL
     Indication: OSTEOPOROSIS
  5. SOMA [Concomitant]
     Active Substance: CARISOPRODOL
     Indication: BACK DISORDER
  6. TIZANIDINE. [Concomitant]
     Active Substance: TIZANIDINE
     Indication: OSTEOPOROSIS
     Dosage: 4 MG, 4X/DAY
     Dates: start: 2002
  7. LYRICA [Suspect]
     Active Substance: PREGABALIN
     Indication: HYPOAESTHESIA
  8. LYRICA [Suspect]
     Active Substance: PREGABALIN
     Indication: ACUTE KIDNEY INJURY
  9. SOMA [Concomitant]
     Active Substance: CARISOPRODOL
     Indication: INTERVERTEBRAL DISC DEGENERATION
  10. TIZANIDINE. [Concomitant]
     Active Substance: TIZANIDINE
     Indication: INTERVERTEBRAL DISC DEGENERATION
  11. LYRICA [Suspect]
     Active Substance: PREGABALIN
     Indication: DIABETES MELLITUS
     Dosage: 75 MG, 2X/DAY
     Route: 048
     Dates: start: 2019
  12. TIZANIDINE. [Concomitant]
     Active Substance: TIZANIDINE
     Indication: SCOLIOSIS
     Dosage: 4 MG, 3X/DAY
     Dates: start: 2002
  13. FIORICET [Concomitant]
     Active Substance: ACETAMINOPHEN\BUTALBITAL\CAFFEINE
     Indication: HEADACHE
     Dosage: UNK, AS NEEDED ((BUTALBITAL: 50MG, ACETAMINOPHEN: 325MG, CAFFEINE: 40MG))
  14. LYRICA [Suspect]
     Active Substance: PREGABALIN
     Indication: PARAESTHESIA

REACTIONS (4)
  - Depression [Unknown]
  - Paraesthesia [Not Recovered/Not Resolved]
  - Violence-related symptom [Unknown]
  - Weight increased [Unknown]
